FAERS Safety Report 7720551-1 (Version None)
Quarter: 2011Q3

REPORT INFORMATION
  Report Type: 
  Country: None (occurrence: None)
  Receive Date: 20110831
  Receipt Date: 20110831
  Transmission Date: 20111222
  Serious: Yes (Hospitalization)
  Sender: FDA-Public Use
  Company Number: None

PATIENT
  Sex: Female
  Weight: 53 kg

DRUGS (13)
  1. CANDESARTAN CILEXETIL [Concomitant]
     Route: 048
  2. DUONEB TREATMENTS [Concomitant]
  3. CARDIZEM CD [Concomitant]
     Route: 048
  4. WELLBUTRIN SR [Concomitant]
     Route: 048
  5. POTASSIUM [Concomitant]
     Route: 048
  6. DETROL LA [Concomitant]
     Route: 048
  7. XANAX [Concomitant]
     Route: 048
  8. NEXIUM [Concomitant]
     Route: 048
  9. PRADAXA [Suspect]
     Indication: ATRIAL FIBRILLATION
     Dosage: 75 MG
     Route: 048
     Dates: start: 20110801, end: 20110828
  10. VICODIN PRN [Concomitant]
     Route: 048
  11. ALBUTEROL PRN [Concomitant]
  12. FERROUS SULFATE TAB [Concomitant]
  13. FLECAINIDE ACETATE [Concomitant]
     Route: 048

REACTIONS (4)
  - NAUSEA [None]
  - FAECES DISCOLOURED [None]
  - ABDOMINAL PAIN [None]
  - VOMITING [None]
